FAERS Safety Report 11416909 (Version 1)
Quarter: 2015Q3

REPORT INFORMATION
  Report Type: Spontaneous
  Country: US (occurrence: US)
  Receive Date: 20150825
  Receipt Date: 20150825
  Transmission Date: 20151125
  Serious: Yes (Other)
  Sender: FDA-Public Use
  Company Number: PHHY2015US102339

PATIENT
  Age: 32 Year
  Sex: Male

DRUGS (1)
  1. ACETYLSALICYLIC ACID [Suspect]
     Active Substance: ASPIRIN
     Indication: MAST CELL ACTIVATION SYNDROME
     Route: 065

REACTIONS (1)
  - No therapeutic response [Unknown]
